FAERS Safety Report 6022506-4 (Version None)
Quarter: 2008Q4

REPORT INFORMATION
  Report Type: 
  Country: None (occurrence: None)
  Receive Date: 20081230
  Receipt Date: 20081218
  Transmission Date: 20090506
  Serious: Yes (Other)
  Sender: FDA-Public Use
  Company Number: PHHY2008DE31144

PATIENT
  Sex: Female
  Weight: 65 kg

DRUGS (4)
  1. CGS 20267 T30748+ [Suspect]
     Indication: BREAST CANCER
     Dosage: 2.5 MG/DAY
     Route: 048
     Dates: start: 20081104, end: 20081119
  2. VENLAFAXINE HCL [Concomitant]
     Dosage: 75 MG
     Dates: start: 20050101
  3. XALATAN [Concomitant]
     Dosage: UNK
     Dates: start: 20010101
  4. ASCO TOP [Concomitant]

REACTIONS (3)
  - CORONARY ARTERY DISEASE [None]
  - GLAUCOMA [None]
  - TACHYCARDIA [None]
